FAERS Safety Report 7028204-2 (Version None)
Quarter: 2010Q3

REPORT INFORMATION
  Report Type: 
  Country: None (occurrence: None)
  Receive Date: 20100930
  Receipt Date: 20100916
  Transmission Date: 20110219
  Serious: Yes (Other)
  Sender: FDA-Public Use
  Company Number: 2010-3192

PATIENT
  Sex: Male

DRUGS (1)
  1. APO-GO AMPOULES (APO-GO) (APOMORPHINE HYDROCHLORIDE) (APOMORPHINE HYDR [Suspect]
     Indication: PARKINSON'S DISEASE
     Dosage: (CONTINUOUS INFUSION), SUBCUTANEOUS
     Route: 058

REACTIONS (5)
  - CONFUSIONAL STATE [None]
  - DEVICE MALFUNCTION [None]
  - FALL [None]
  - RESPIRATORY ARREST [None]
  - SYNCOPE [None]
